FAERS Safety Report 5871803-1 (Version None)
Quarter: 2008Q3

REPORT INFORMATION
  Report Type: 
  Country: None (occurrence: None)
  Receive Date: 20080905
  Receipt Date: 20080827
  Transmission Date: 20090109
  Serious: Yes (Other)
  Sender: FDA-Public Use
  Company Number: US-JNJFOC-20080806281

PATIENT
  Sex: Female

DRUGS (3)
  1. REMICADE [Suspect]
     Dosage: INC. TO 6 VIALS Q 6 WEEKS
     Route: 042
  2. REMICADE [Suspect]
     Dosage: INC. TO 6 VIALS Q 6 WEEKS
     Route: 042
  3. REMICADE [Suspect]
     Indication: RHEUMATOID ARTHRITIS
     Dosage: 4 VIALS Q 6 WEEKS
     Route: 042

REACTIONS (2)
  - LYMPHADENOPATHY [None]
  - VOCAL CORD PARALYSIS [None]
